FAERS Safety Report 5481545-2 (Version None)
Quarter: 2007Q4

REPORT INFORMATION
  Report Type: 
  Country: None (occurrence: None)
  Receive Date: 20071010
  Receipt Date: 20071002
  Transmission Date: 20080405
  Serious: Yes (Hospitalization)
  Sender: FDA-Public Use
  Company Number: AU-MERCK-0710AUS00005

PATIENT
  Age: 81 Year
  Sex: Female

DRUGS (6)
  1. FOSAMAX [Suspect]
     Route: 048
  2. NAPROXEN [Suspect]
     Route: 065
  3. FUROSEMIDE [Concomitant]
     Route: 065
  4. POTASSIUM CHLORIDE [Concomitant]
     Route: 065
  5. TERBUTALINE SULFATE [Concomitant]
     Route: 065
  6. BUDESONIDE [Concomitant]
     Route: 065

REACTIONS (5)
  - ABDOMINAL PAIN [None]
  - CONSTIPATION [None]
  - DUODENAL ULCER [None]
  - MELAENA [None]
  - RENAL IMPAIRMENT [None]
